FAERS Safety Report 20189278 (Version 5)
Quarter: 2022Q1

REPORT INFORMATION
  Report Type: Spontaneous
  Country: JP (occurrence: JP)
  Receive Date: 20211215
  Receipt Date: 20220321
  Transmission Date: 20220423
  Serious: Yes (Death, Life-Threatening, Hospitalization)
  Sender: FDA-Public Use
  Company Number: JP-Eisai-202109778_LEN_P_1

PATIENT
  Age: 79 Year
  Sex: Female
  Weight: 38 kg

DRUGS (3)
  1. LENVATINIB [Suspect]
     Active Substance: LENVATINIB
     Indication: Papillary thyroid cancer
     Route: 048
     Dates: start: 20191127, end: 20200118
  2. LENVATINIB [Suspect]
     Active Substance: LENVATINIB
     Route: 048
     Dates: start: 20200210, end: 20200312
  3. CILOSTAZOL [Concomitant]
     Active Substance: CILOSTAZOL
     Indication: Cerebral infarction
     Route: 048
     Dates: start: 201111, end: 20200312

REACTIONS (1)
  - Oesophageal fistula [Fatal]

NARRATIVE: CASE EVENT DATE: 20200111
